FAERS Safety Report 6774724-5 (Version None)
Quarter: 2010Q2

REPORT INFORMATION
  Report Type: 
  Country: None (occurrence: None)
  Receive Date: 20100617
  Receipt Date: 20100611
  Transmission Date: 20101027
  Serious: Yes (Other)
  Sender: FDA-Public Use
  Company Number: FR-ROCHE-709048

PATIENT
  Sex: Female

DRUGS (3)
  1. AVASTIN [Suspect]
     Route: 042
     Dates: start: 20090727, end: 20091201
  2. NAVELBINE [Concomitant]
     Indication: BREAST CANCER METASTATIC
     Dosage: SUSPENDED DUE TO ARTHRALGIA
     Route: 048
     Dates: start: 20090727, end: 20090817
  3. NAVELBINE [Concomitant]
     Route: 048
     Dates: start: 20091110, end: 20091222

REACTIONS (2)
  - GINGIVITIS [None]
  - PERIODONTAL DISEASE [None]
